FAERS Safety Report 9921735 (Version 2)
Quarter: 2014Q1

REPORT INFORMATION
  Report Type: Spontaneous
  Country: DE (occurrence: DE)
  Receive Date: 20140225
  Receipt Date: 20140310
  Transmission Date: 20141002
  Serious: Yes (Hospitalization, Other)
  Sender: FDA-Public Use
  Company Number: DE-UCBSA-113203

PATIENT
  Age: 55 Year
  Sex: Female

DRUGS (6)
  1. VIMPAT [Suspect]
     Indication: CONVULSION
     Dosage: 150-0-150MG
     Dates: start: 20081202, end: 200909
  2. KEPPRA [Suspect]
     Indication: CONVULSION
     Dosage: DAILY DOSE: 3000 MG
     Route: 048
  3. KEPPRA [Suspect]
     Indication: CONVULSION
     Dosage: SINCE A LONG TIME
  4. SIMVASTATIN [Concomitant]
  5. OMEPRAZOLE [Concomitant]
  6. THYROXIN [Concomitant]
     Route: 048

REACTIONS (3)
  - Atrial fibrillation [Recovered/Resolved]
  - Status epilepticus [Unknown]
  - Convulsion [Unknown]
